FAERS Safety Report 4821566-3 (Version None)
Quarter: 2005Q4

REPORT INFORMATION
  Report Type: 
  Country: None (occurrence: None)
  Receive Date: 20051103
  Receipt Date: 20051103
  Transmission Date: 20060501
  Serious: Yes (Hospitalization)
  Sender: FDA-Public Use
  Company Number: None

PATIENT
  Sex: Male

DRUGS (2)
  1. OXALIPLATIN 130 MG/M2 [Suspect]
     Indication: HEPATIC NEOPLASM MALIGNANT
     Dosage: 247 MG Q 4 WK HEPATIC AORTA INFUSION
     Route: 025
     Dates: start: 20050913
  2. OXALIPLATIN 130 MG/M2 [Suspect]
     Indication: HEPATIC NEOPLASM MALIGNANT
     Dosage: 247 MG Q 4 WK HEPATIC AORTA INFUSION
     Route: 025
     Dates: start: 20051012

REACTIONS (5)
  - ABDOMINAL PAIN [None]
  - CONDITION AGGRAVATED [None]
  - DYSPNOEA [None]
  - HEPATIC NEOPLASM MALIGNANT [None]
  - PLEURAL EFFUSION [None]
